FAERS Safety Report 9387247 (Version 1)
Quarter: 2013Q3

REPORT INFORMATION
  Report Type: Spontaneous
  Country: GB (occurrence: None)
  Receive Date: 20130702
  Receipt Date: 20130702
  Transmission Date: 20140515
  Serious: Yes (Life-Threatening)
  Sender: FDA-Public Use
  Company Number: FK201302172

PATIENT
  Age: 69 Year
  Sex: Female

DRUGS (7)
  1. CEFUROXIME [Suspect]
     Indication: PRODUCT USED FOR UNKNOWN INDICATION
     Route: 042
     Dates: start: 20130530, end: 20130530
  2. CHLORHEXIDINE [Suspect]
     Indication: PRODUCT USED FOR UNKNOWN INDICATION
     Route: 061
     Dates: start: 20130530, end: 20130530
  3. DEXAMETHASONE (DEXAMETHASONE)(DEXAMETHASONE) [Concomitant]
  4. FENTANYL (FENTANYL)(FENTANYL) [Concomitant]
  5. MEBEVERINE (MEBEVERINE)(MEBEVERINE) [Concomitant]
  6. MIDAZOLAM (MIDAZOLAM)(MIDAZOLAM) [Concomitant]
  7. ONDANSETRON (ONDANSETRON)(ONDANSETRON) [Concomitant]

REACTIONS (3)
  - Application site vesicles [None]
  - Blood pressure abnormal [None]
  - Blood blister [None]
